FAERS Safety Report 12313838 (Version 1)
Quarter: 2016Q2

REPORT INFORMATION
  Report Type: Spontaneous
  Country: US (occurrence: US)
  Receive Date: 20160428
  Receipt Date: 20160428
  Transmission Date: 20160815
  Serious: No
  Sender: FDA-Public Use
  Company Number: 2012-003155 WARNER CHILCOTT

PATIENT
  Age: 56 Year
  Sex: Female

DRUGS (1)
  1. ATELVIA [Suspect]
     Active Substance: RISEDRONATE SODIUM
     Indication: OSTEOPOROSIS
     Route: 048
     Dates: start: 2012, end: 2012

REACTIONS (14)
  - Abdominal pain upper [Not Recovered/Not Resolved]
  - Influenza like illness [Not Recovered/Not Resolved]
  - Constipation [Not Recovered/Not Resolved]
  - Migraine [Not Recovered/Not Resolved]
  - Memory impairment [Not Recovered/Not Resolved]
  - Diarrhoea [Recovered/Resolved]
  - Chills [Not Recovered/Not Resolved]
  - Arthralgia [Not Recovered/Not Resolved]
  - Paraesthesia [Not Recovered/Not Resolved]
  - Neuralgia [Not Recovered/Not Resolved]
  - Pyrexia [Recovered/Resolved]
  - Gastrointestinal pain [Recovered/Resolved]
  - Amnesia [Not Recovered/Not Resolved]
  - Aphasia [Not Recovered/Not Resolved]

NARRATIVE: CASE EVENT DATE: 2012
